FAERS Safety Report 10500876 (Version 4)
Quarter: 2015Q1

REPORT INFORMATION
  Report Type: Report from Study
  Country: US (occurrence: US)
  Receive Date: 20141007
  Receipt Date: 20150106
  Transmission Date: 20150720
  Serious: Yes (Hospitalization)
  Sender: FDA-Public Use
  Company Number: US-BIOGENIDEC-2014BI101860

PATIENT
  Sex: Female

DRUGS (27)
  1. ASCORBIC ACID. [Concomitant]
     Active Substance: ASCORBIC ACID
  2. KEPPRA [Concomitant]
     Active Substance: LEVETIRACETAM
  3. MULTI VITAMIN WITH IRON [Concomitant]
  4. ZOLPIDEM [Concomitant]
     Active Substance: ZOLPIDEM\ZOLPIDEM TARTRATE
  5. ASPIRIN. [Concomitant]
     Active Substance: ASPIRIN
  6. CLONAZEPAM. [Concomitant]
     Active Substance: CLONAZEPAM
  7. DULOXETINE [Concomitant]
     Active Substance: DULOXETINE
  8. ABILIFY [Concomitant]
     Active Substance: ARIPIPRAZOLE
  9. SENOKOT-S [Concomitant]
     Active Substance: DOCUSATE SODIUM\SENNOSIDES
  10. AMLODIPINE [Concomitant]
     Active Substance: AMLODIPINE BESYLATE
  11. NEURONTIN [Concomitant]
     Active Substance: GABAPENTIN
  12. ORAGEL [Concomitant]
  13. TYSABRI [Suspect]
     Active Substance: NATALIZUMAB
     Indication: MULTIPLE SCLEROSIS
     Route: 042
     Dates: start: 20070829, end: 20090206
  14. GUAIFENESIN. [Concomitant]
     Active Substance: GUAIFENESIN
  15. CARBAMAZEPINE. [Concomitant]
     Active Substance: CARBAMAZEPINE
  16. NORCO [Concomitant]
     Active Substance: ACETAMINOPHEN\HYDROCODONE BITARTRATE
  17. FUROSEMIDE. [Concomitant]
     Active Substance: FUROSEMIDE
  18. ELOCON [Concomitant]
     Active Substance: MOMETASONE FUROATE
  19. TRAMADOL [Concomitant]
     Active Substance: TRAMADOL
  20. PREMARIN [Concomitant]
     Active Substance: ESTROGENS, CONJUGATED
  21. POTASSIUM [Concomitant]
     Active Substance: POTASSIUM
  22. BACLOFEN. [Concomitant]
     Active Substance: BACLOFEN
  23. TYSABRI [Suspect]
     Active Substance: NATALIZUMAB
     Indication: MULTIPLE SCLEROSIS
     Route: 042
     Dates: start: 20070829, end: 20140721
  24. ROBITUSSIN (GUAIFENESIN) [Concomitant]
     Active Substance: GUAIFENESIN
  25. FOSAMAX [Concomitant]
     Active Substance: ALENDRONATE SODIUM
  26. NAPROXEN. [Concomitant]
     Active Substance: NAPROXEN
  27. CALCIUM CITRATE [Concomitant]
     Active Substance: CALCIUM CITRATE

REACTIONS (6)
  - Seizure [Unknown]
  - Fatigue [Unknown]
  - Transient ischaemic attack [Unknown]
  - Metabolic disorder [Unknown]
  - Multiple sclerosis relapse [Unknown]
  - Deep vein thrombosis [Unknown]
